FAERS Safety Report 8121506-8 (Version None)
Quarter: 2012Q1

REPORT INFORMATION
  Report Type: 
  Country: None (occurrence: None)
  Receive Date: 20120208
  Receipt Date: 20120202
  Transmission Date: 20120608
  Serious: No
  Sender: FDA-Public Use
  Company Number: US-PFIZER INC-2012030594

PATIENT
  Sex: Male
  Weight: 113.4 kg

DRUGS (1)
  1. GENOTROPIN [Suspect]
     Indication: GROWTH HORMONE DEFICIENCY
     Dosage: 0.4 MG, AT BEDTIME 6 DAYS A WEEK
     Route: 058

REACTIONS (1)
  - ARTHRALGIA [None]
